FAERS Safety Report 5994745-X (Version None)
Quarter: 2008Q4

REPORT INFORMATION
  Report Type: 
  Country: None (occurrence: None)
  Receive Date: 20081212
  Receipt Date: 20080915
  Transmission Date: 20090506
  Serious: No
  Sender: FDA-Public Use
  Company Number: US-ABBOTT-08P-163-0476030-00

PATIENT
  Sex: Female
  Weight: 88.53 kg

DRUGS (4)
  1. HUMIRA [Suspect]
     Indication: CROHN'S DISEASE
     Route: 058
     Dates: start: 20080401
  2. ALENDRONATE SODIUM [Concomitant]
     Indication: CROHN'S DISEASE
     Route: 048
     Dates: start: 20080301
  3. MESALAMINE [Concomitant]
     Indication: CROHN'S DISEASE
     Route: 048
     Dates: start: 20030101
  4. VITAMIN C WITH D [Concomitant]
     Indication: CROHN'S DISEASE
     Route: 048
     Dates: start: 19980101

REACTIONS (2)
  - ACCIDENTAL EXPOSURE [None]
  - FAECAL INCONTINENCE [None]
